FAERS Safety Report 8861458 (Version 1)
Quarter: 2012Q4

REPORT INFORMATION
  Report Type: Spontaneous
  Country: US (occurrence: None)
  Receive Date: 20121025
  Receipt Date: 20121025
  Transmission Date: 20130627
  Serious: Yes (Hospitalization, Other)
  Sender: FDA-Public Use
  Company Number: None

PATIENT
  Age: 78 Year
  Sex: Female

DRUGS (1)
  1. PRADAXA [Suspect]
     Dosage: 150 MG PO BID
     Route: 048
     Dates: start: 20120414, end: 20120430

REACTIONS (3)
  - Lower gastrointestinal haemorrhage [None]
  - Renal failure acute [None]
  - Haematochezia [None]
